FAERS Safety Report 4523412-4 (Version None)
Quarter: 2004Q4

REPORT INFORMATION
  Report Type: 
  Country: None (occurrence: None)
  Receive Date: 20041117
  Receipt Date: 20040224
  Transmission Date: 20050328
  Serious: Yes (Life-Threatening)
  Sender: FDA-Public Use
  Company Number: US-JNJFOC-20040300391

PATIENT
  Age: 54 Year
  Sex: Male
  Weight: 70.7611 kg

DRUGS (1)
  1. LEVAQUIN [Suspect]
     Indication: INFECTION
     Dosage: INTRAVENOUS
     Route: 042
     Dates: start: 20030905

REACTIONS (1)
  - STEVENS-JOHNSON SYNDROME [None]
